FAERS Safety Report 5629046-2 (Version None)
Quarter: 2008Q1

REPORT INFORMATION
  Report Type: 
  Country: None (occurrence: None)
  Receive Date: 20080216
  Receipt Date: 20080206
  Transmission Date: 20080703
  Serious: Yes (Death, Other)
  Sender: FDA-Public Use
  Company Number: US-PURDUE-USA_2008_0031478

PATIENT
  Age: 61 Year
  Sex: Male

DRUGS (4)
  1. DILAUDID TABLET [Suspect]
     Indication: DRUG USE FOR UNKNOWN INDICATION
  2. FENTANYL [Concomitant]
  3. DEMEROL [Concomitant]
  4. KETOROLAC TROMETHAMINE [Concomitant]

REACTIONS (4)
  - ANXIETY [None]
  - DEATH [None]
  - SEDATION [None]
  - SENSORY DISTURBANCE [None]
